FAERS Safety Report 12636920 (Version 1)
Quarter: 2016Q3

REPORT INFORMATION
  Report Type: Spontaneous
  Country: CA (occurrence: CA)
  Receive Date: 20160809
  Receipt Date: 20160809
  Transmission Date: 20161109
  Serious: Yes (Other)
  Sender: FDA-Public Use
  Company Number: PHHY2016CA106356

PATIENT
  Age: 23 Year
  Sex: Female
  Weight: 53.61 kg

DRUGS (5)
  1. QUETIAPINE SANDOZ [Suspect]
     Active Substance: QUETIAPINE
     Indication: ANXIETY
     Dosage: 50 MG, QD
     Route: 048
  2. CITALOPRAM [Concomitant]
     Active Substance: CITALOPRAM HYDROBROMIDE
     Indication: PRODUCT USED FOR UNKNOWN INDICATION
     Route: 065
  3. DOCUSATE SODIUM. [Concomitant]
     Active Substance: DOCUSATE SODIUM
     Indication: PRODUCT USED FOR UNKNOWN INDICATION
     Route: 065
  4. QUETIAPINE SANDOZ [Suspect]
     Active Substance: QUETIAPINE
     Indication: INSOMNIA
     Dosage: 25 MG, QD
     Route: 048
  5. QUETIAPINE SANDOZ [Suspect]
     Active Substance: QUETIAPINE
     Dosage: 400 MG, QD
     Route: 048

REACTIONS (3)
  - Micturition urgency [Unknown]
  - Urinary hesitation [Unknown]
  - Urinary retention [Unknown]
